FAERS Safety Report 4945589-9 (Version None)
Quarter: 2006Q1

REPORT INFORMATION
  Report Type: 
  Country: None (occurrence: None)
  Receive Date: 20060316
  Receipt Date: 20050829
  Transmission Date: 20060701
  Serious: Yes (Hospitalization)
  Sender: FDA-Public Use
  Company Number: US-MERCK-0508USA05090

PATIENT
  Age: 61 Year
  Sex: Male

DRUGS (3)
  1. VIOXX [Suspect]
     Indication: PAIN
     Route: 048
     Dates: start: 20020301
  2. VIOXX [Suspect]
     Route: 048
     Dates: start: 20021201, end: 20030101
  3. VIOXX [Suspect]
     Route: 048

REACTIONS (19)
  - ACUTE CORONARY SYNDROME [None]
  - ANGINA UNSTABLE [None]
  - BACK PAIN [None]
  - CHEST PAIN [None]
  - COLITIS [None]
  - CORONARY ARTERY DISEASE [None]
  - CORONARY ARTERY OCCLUSION [None]
  - CORONARY ARTERY STENOSIS [None]
  - DIVERTICULITIS [None]
  - EPICONDYLITIS [None]
  - HYPERLIPIDAEMIA [None]
  - HYPERTENSION [None]
  - INJURY [None]
  - OSTEOARTHRITIS [None]
  - OTITIS EXTERNA [None]
  - PAIN IN EXTREMITY [None]
  - RHINITIS ALLERGIC [None]
  - SINUSITIS [None]
  - VENTRICULAR DYSFUNCTION [None]
